FAERS Safety Report 13844091 (Version 2)
Quarter: 2017Q3

REPORT INFORMATION
  Report Type: Spontaneous
  Country: SE (occurrence: SE)
  Receive Date: 20170808
  Receipt Date: 20170914
  Transmission Date: 20171127
  Serious: Yes (Other)
  Sender: FDA-Public Use
  Company Number: SE-009507513-1706SWE007705

PATIENT
  Age: 41 Year
  Sex: Female

DRUGS (1)
  1. NEXPLANON [Suspect]
     Active Substance: ETONOGESTREL
     Dosage: 1 IMPLANT IN THE LEFT ARM
     Route: 059
     Dates: start: 20141117, end: 20150507

REACTIONS (11)
  - Mental disorder due to a general medical condition [Unknown]
  - Migration of implanted drug [Recovered/Resolved]
  - Complication associated with device [Recovered/Resolved]
  - Implant site pruritus [Recovered/Resolved]
  - Breast tenderness [Recovered/Resolved]
  - Acne [Not Recovered/Not Resolved]
  - Breast enlargement [Recovered/Resolved]
  - Device difficult to use [Recovered/Resolved]
  - Device deployment issue [Recovered/Resolved]
  - Subcutaneous abscess [Recovered/Resolved]
  - Connective tissue disorder [Recovered/Resolved]

NARRATIVE: CASE EVENT DATE: 20141117
